FAERS Safety Report 7123746-3 (Version None)
Quarter: 2010Q4

REPORT INFORMATION
  Report Type: 
  Country: None (occurrence: None)
  Receive Date: 20101125
  Receipt Date: 20101112
  Transmission Date: 20110411
  Serious: Yes (Hospitalization, Other)
  Sender: FDA-Public Use
  Company Number: PHHY2010US79232

PATIENT
  Sex: Female

DRUGS (2)
  1. GLEEVEC [Suspect]
     Indication: NEOPLASM MALIGNANT
     Dosage: 400 MG, UNK
     Route: 048
     Dates: start: 20100308
  2. CIPRO [Concomitant]
     Dosage: UNK

REACTIONS (3)
  - DYSGEUSIA [None]
  - OSTEOMYELITIS [None]
  - RASH [None]
